FAERS Safety Report 5501917-7 (Version None)
Quarter: 2007Q4

REPORT INFORMATION
  Report Type: 
  Country: None (occurrence: None)
  Receive Date: 20071030
  Receipt Date: 20071022
  Transmission Date: 20080405
  Serious: Yes (Hospitalization, Other)
  Sender: FDA-Public Use
  Company Number: PHBS2007NL15560

PATIENT
  Age: 75 Year
  Sex: Male

DRUGS (9)
  1. DIOVAN [Suspect]
     Indication: HYPERTENSION
     Dosage: 320 MG, UNK
     Dates: start: 20070701, end: 20070807
  2. DIOVAN [Suspect]
     Dosage: 160 MG, UNK
     Dates: start: 20070808
  3. DIURETICS [Concomitant]
  4. BETA BLOCKING AGENTS [Concomitant]
  5. PLAVIX [Concomitant]
  6. ASCAL [Concomitant]
  7. METOPROLOL [Concomitant]
  8. HYDROCHLOROTHIAZIDE [Concomitant]
  9. SIMVASTATIN [Concomitant]

REACTIONS (3)
  - ANGIOPLASTY [None]
  - CIRCULATORY COLLAPSE [None]
  - ORTHOSTATIC HYPOTENSION [None]
